FAERS Safety Report 21945027 (Version 1)
Quarter: 2023Q1

REPORT INFORMATION
  Report Type: Other
  Country: CA (occurrence: CA)
  Receive Date: 20230202
  Receipt Date: 20230202
  Transmission Date: 20230418
  Serious: Yes (Other)
  Sender: FDA-Public Use
  Company Number: CA-CELLTRION INC.-2021CA019391

PATIENT

DRUGS (32)
  1. RITUXIMAB [Suspect]
     Active Substance: RITUXIMAB
     Indication: Rheumatoid arthritis
     Dosage: 1000 MG 1 EVERY 6 MONTHS
     Route: 041
  2. AMINOBENZOIC ACID [Concomitant]
     Active Substance: AMINOBENZOIC ACID
  3. LORAZEPAM [Concomitant]
     Active Substance: LORAZEPAM
  4. LORAZEPAM [Concomitant]
     Active Substance: LORAZEPAM
  5. LORAZEPAM [Concomitant]
     Active Substance: LORAZEPAM
  6. CALCIUM CARBONATE [Concomitant]
     Active Substance: CALCIUM CARBONATE
     Dosage: 2 EVERY 1 DAY
     Route: 048
  7. CALCIUM CARBONATE [Concomitant]
     Active Substance: CALCIUM CARBONATE
     Dosage: 2 EVERY 1 DAY
     Route: 048
  8. CALCIUM CARBONATE [Concomitant]
     Active Substance: CALCIUM CARBONATE
     Dosage: UNK UNK, BID
     Route: 048
  9. CELEBREX [Concomitant]
     Active Substance: CELECOXIB
     Indication: Swelling
     Dosage: 2 EVERY 1 DAY
     Route: 065
  10. CELEBREX [Concomitant]
     Active Substance: CELECOXIB
     Indication: Pain
     Dosage: 2 EVERY 1 DAY
     Route: 048
  11. CELEBREX [Concomitant]
     Active Substance: CELECOXIB
     Indication: Swelling
  12. CELEBREX [Concomitant]
     Active Substance: CELECOXIB
     Indication: Pain
     Dosage: 2 EVERY 1 DAYS
  13. CLONAZEPAM [Concomitant]
     Active Substance: CLONAZEPAM
     Dosage: 2 EVERY 1 DAY
     Route: 065
  14. CLONAZEPAM [Concomitant]
     Active Substance: CLONAZEPAM
     Dosage: 2 EVERY 1 DAY
     Route: 048
  15. CLONAZEPAM [Concomitant]
     Active Substance: CLONAZEPAM
     Dosage: 2 EVERY 1 DAYS
  16. FOLIC ACID [Concomitant]
     Active Substance: FOLIC ACID
  17. FOLIC ACID [Concomitant]
     Active Substance: FOLIC ACID
  18. FOLIC ACID [Concomitant]
     Active Substance: FOLIC ACID
  19. MAGNESIUM [Concomitant]
     Active Substance: MAGNESIUM
  20. MAGNESIUM [Concomitant]
     Active Substance: MAGNESIUM
  21. MAGNESIUM [Concomitant]
     Active Substance: MAGNESIUM
  22. PANTOPRAZOLE [Concomitant]
     Active Substance: PANTOPRAZOLE
     Indication: Abdominal discomfort
     Dosage: 1 EVERY 1 DAYS
  23. PANTOPRAZOLE [Concomitant]
     Active Substance: PANTOPRAZOLE
     Indication: Abdominal discomfort
     Dosage: 1 EVERY 1 DAYS
  24. PANTOPRAZOLE [Concomitant]
     Active Substance: PANTOPRAZOLE
     Dosage: 1 EVERY 1 DAYS
  25. PANTOPRAZOLE MAGNESIUM [Concomitant]
     Active Substance: PANTOPRAZOLE MAGNESIUM
     Dosage: UNK
  26. PANTOPRAZOLE MAGNESIUM [Concomitant]
     Active Substance: PANTOPRAZOLE MAGNESIUM
     Dosage: UNK
  27. PANTOPRAZOLE SODIUM [Concomitant]
     Active Substance: PANTOPRAZOLE SODIUM
     Indication: Abdominal discomfort
     Dosage: 1 EVERY 1 DAYS
     Route: 065
  28. PANTOPRAZOLE SODIUM [Concomitant]
     Active Substance: PANTOPRAZOLE SODIUM
     Dosage: 1 EVERY 1 DAYS
     Route: 048
  29. PANTOPRAZOLE MAGNESIUM [Concomitant]
     Active Substance: PANTOPRAZOLE MAGNESIUM
     Dosage: UNK
     Route: 065
  30. VITAMIN D3 [Concomitant]
     Active Substance: CHOLECALCIFEROL
  31. VITAMIN D3 [Concomitant]
     Active Substance: CHOLECALCIFEROL
  32. VITAMIN D3 [Concomitant]
     Active Substance: CHOLECALCIFEROL

REACTIONS (15)
  - Blood creatinine decreased [Recovered/Resolved]
  - Haematocrit decreased [Recovered/Resolved]
  - Haemoglobin decreased [Recovered/Resolved]
  - Immunoglobulins increased [Recovered/Resolved]
  - Joint stiffness [Recovered/Resolved]
  - Musculoskeletal discomfort [Recovered/Resolved]
  - Red blood cell count decreased [Recovered/Resolved]
  - Red blood cell sedimentation rate increased [Recovered/Resolved]
  - White blood cell count decreased [Recovered/Resolved]
  - Rheumatoid arthritis [Recovered/Resolved]
  - Abdominal pain [Recovered/Resolved]
  - Arthralgia [Recovered/Resolved]
  - Gastrointestinal disorder [Recovered/Resolved]
  - Lymphocyte count decreased [Recovered/Resolved]
  - Hypotension [Recovered/Resolved]
